FAERS Safety Report 25465549 (Version 1)
Quarter: 2025Q2

REPORT INFORMATION
  Report Type: Spontaneous
  Country: DE (occurrence: DE)
  Receive Date: 20250623
  Receipt Date: 20250623
  Transmission Date: 20250717
  Serious: Yes (Life-Threatening, Hospitalization, Other)
  Sender: ACCORD
  Company Number: None

PATIENT
  Age: 56 Year
  Sex: Female
  Weight: 90 kg

DRUGS (4)
  1. PACLITAXEL [Suspect]
     Active Substance: PACLITAXEL
     Indication: Breast cancer female
     Dates: start: 20250527, end: 20250527
  2. DIMETHINDENE MALEATE [Concomitant]
     Active Substance: DIMETHINDENE MALEATE
     Indication: Antiallergic therapy
     Dates: start: 20250527
  3. GRANISETRON [Concomitant]
     Active Substance: GRANISETRON
     Indication: Prophylaxis of nausea and vomiting
     Dates: start: 20250527
  4. DEXAMETHASONE [Concomitant]
     Active Substance: DEXAMETHASONE
     Indication: Prophylaxis of nausea and vomiting
     Dates: start: 20250527

REACTIONS (3)
  - Hypersensitivity [Recovering/Resolving]
  - Anaphylactic shock [Recovering/Resolving]
  - Cardiac arrest [Recovered/Resolved]

NARRATIVE: CASE EVENT DATE: 20250527
